FAERS Safety Report 5059943-0 (Version None)
Quarter: 2006Q3

REPORT INFORMATION
  Report Type: 
  Country: None (occurrence: None)
  Receive Date: 20060719
  Receipt Date: 20060706
  Transmission Date: 20061208
  Serious: Yes (Hospitalization)
  Sender: FDA-Public Use
  Company Number: S06-SWI-02852-01

PATIENT
  Age: 17 Year
  Sex: Male

DRUGS (4)
  1. CITALOPRAM HYDROBROMIDE [Suspect]
     Indication: DEPRESSION
     Dosage: 40 MG QD PO
     Route: 048
     Dates: end: 20060612
  2. NOZINAN (LEVOMEPROMAZINE) [Suspect]
     Indication: CONDUCT DISORDER
     Dosage: 75 MG QD PO
     Route: 048
     Dates: start: 20060608, end: 20060611
  3. MIRTAZAPINE [Suspect]
     Indication: TENSION
     Dosage: 15 MG QD PO
     Route: 048
     Dates: start: 20060611, end: 20060612
  4. AKINETON [Suspect]
     Indication: EXTRAPYRAMIDAL DISORDER
     Dosage: 4 MG QD PO
     Route: 048
     Dates: start: 20060612, end: 20060612

REACTIONS (4)
  - DELIRIUM [None]
  - EXTRAPYRAMIDAL DISORDER [None]
  - LOSS OF CONSCIOUSNESS [None]
  - OXYGEN SATURATION DECREASED [None]
